FAERS Safety Report 25324080 (Version 1)
Quarter: 2025Q2

REPORT INFORMATION
  Report Type: Spontaneous
  Country: CA (occurrence: CA)
  Receive Date: 20250516
  Receipt Date: 20250516
  Transmission Date: 20250717
  Serious: Yes (Other)
  Sender: INSUD PHARMA
  Company Number: US-MIMS-DUC-2025-US-00326

PATIENT
  Age: 40 Year
  Sex: Female

DRUGS (1)
  1. DROSPIRENONE [Suspect]
     Active Substance: DROSPIRENONE
     Indication: Menstrual cycle management
     Route: 065

REACTIONS (7)
  - Suicidal ideation [Recovered/Resolved]
  - Gastrointestinal motility disorder [Recovered/Resolved]
  - Anorgasmia [Recovered/Resolved]
  - Headache [Recovered/Resolved]
  - Libido decreased [Recovered/Resolved]
  - Product prescribing issue [Unknown]
  - Product use in unapproved indication [Recovered/Resolved]
